FAERS Safety Report 14108449 (Version 1)
Quarter: 2017Q4

REPORT INFORMATION
  Report Type: Report from Study
  Country: US (occurrence: US)
  Receive Date: 20171019
  Receipt Date: 20171019
  Transmission Date: 20180321
  Serious: No
  Sender: FDA-Public Use
  Company Number: US-ROCHE-2009270

PATIENT
  Sex: Female

DRUGS (5)
  1. OCREVUS [Suspect]
     Active Substance: OCRELIZUMAB
     Indication: MULTIPLE SCLEROSIS RELAPSE
  2. COPAXONE [Concomitant]
     Active Substance: GLATIRAMER ACETATE
  3. REBIF [Concomitant]
     Active Substance: INTERFERON BETA-1A
  4. OCREVUS [Suspect]
     Active Substance: OCRELIZUMAB
     Indication: MULTIPLE SCLEROSIS
     Dosage: ONGOING UNKNOWN
     Route: 065
     Dates: start: 201708
  5. AVONEX [Concomitant]
     Active Substance: INTERFERON BETA-1A

REACTIONS (2)
  - Memory impairment [Unknown]
  - Bronchitis [Unknown]
